FAERS Safety Report 7335969-9 (Version None)
Quarter: 2011Q1

REPORT INFORMATION
  Report Type: 
  Country: None (occurrence: None)
  Receive Date: 20110307
  Receipt Date: 20110228
  Transmission Date: 20110831
  Serious: Yes (Death)
  Sender: FDA-Public Use
  Company Number: CA-GENZYME-FLUD-1000809

PATIENT

DRUGS (14)
  1. FLUDARA [Suspect]
     Indication: SURGICAL PRECONDITIONING
     Dosage: 50 MG/M2, QD ON DAYS -6 TO -2
     Route: 065
  2. CIPROFLOXACIN [Concomitant]
     Indication: ANTIBIOTIC PROPHYLAXIS
     Dosage: 500 MG, BID UNTIL 2003
     Route: 065
  3. THYMOGLOBULIN [Concomitant]
     Indication: SURGICAL PRECONDITIONING
     Dosage: 0.5 MG/KG, ONCE
     Route: 042
  4. METHOTREXATE [Concomitant]
     Indication: PROPHYLAXIS AGAINST GRAFT VERSUS HOST DISEASE
     Dosage: 15 MG/M2, ONCE ON DAY ONE
     Route: 042
  5. CYCLOSPORINE [Concomitant]
     Indication: PROPHYLAXIS AGAINST GRAFT VERSUS HOST DISEASE
     Dosage: BID, ORAL OR IV, TO MAINTAIN A BLOOD LEVEL BETWEEN 150 TO 400 UMOL/L
     Route: 065
  6. FOLINIC ACID [Concomitant]
     Indication: PROPHYLAXIS AGAINST GRAFT VERSUS HOST DISEASE
     Dosage: 5 MG, ORAL OR IV, STARTED 24 HOURS AFTER EACH MTX DOSE
     Route: 065
  7. BUSULFAN [Suspect]
     Indication: SURGICAL PRECONDITIONING
     Dosage: 3.2 MG/KG, QD ON DAYS -5 TO -2
     Route: 042
  8. PLATELETS [Concomitant]
     Indication: PROPHYLAXIS
     Route: 042
  9. RED BLOOD CELLS [Concomitant]
     Indication: ANAEMIA PROPHYLAXIS
     Route: 042
  10. METHOTREXATE [Concomitant]
     Dosage: 10 MG/M2 ON DAYS 3, 6, 11
     Route: 042
  11. METHYLPREDNISOLONE [Concomitant]
     Indication: PREMEDICATION
     Dosage: 40 MG, BID
     Route: 042
  12. BENADRYL [Concomitant]
     Indication: PREMEDICATION
     Dosage: 50 MG, BEFORE EACH DOSE OF ATG
     Route: 042
  13. THYMOGLOBULIN [Concomitant]
     Dosage: 2 MG/KG, QD X 2
     Route: 042
  14. TRIMETHOPRIM + SULFAMETHOXAZOLE [Concomitant]
     Indication: ANTIFUNGAL PROPHYLAXIS
     Dosage: UNK
     Route: 065

REACTIONS (1)
  - GRAFT VERSUS HOST DISEASE [None]
